FAERS Safety Report 6602283-6 (Version None)
Quarter: 2010Q1

REPORT INFORMATION
  Report Type: 
  Country: None (occurrence: None)
  Receive Date: 20100225
  Receipt Date: 20100216
  Transmission Date: 20100710
  Serious: Yes (Life-Threatening, Hospitalization)
  Sender: FDA-Public Use
  Company Number: DK-WATSON-2010-02043

PATIENT
  Sex: Female
  Weight: 3 kg

DRUGS (2)
  1. CITALOPRAM HYDROBROMIDE [Suspect]
     Indication: DEPRESSION
     Dosage: 40 MG, DAILY
     Route: 064
     Dates: start: 20060901, end: 20080928
  2. SELEXID                            /00445302/ [Concomitant]
     Indication: URINARY TRACT INFECTION
     Dosage: UNK
     Dates: start: 20080626

REACTIONS (3)
  - HEART RATE DECREASED [None]
  - NEONATAL ASPHYXIA [None]
  - RESPIRATORY DISTRESS [None]
